FAERS Safety Report 4747057-6 (Version None)
Quarter: 2005Q3

REPORT INFORMATION
  Report Type: 
  Country: None (occurrence: None)
  Receive Date: 20050815
  Receipt Date: 20050802
  Transmission Date: 20060218
  Serious: Yes (Hospitalization)
  Sender: FDA-Public Use
  Company Number: US_0409105295

PATIENT
  Age: 1 Day
  Sex: Female
  Weight: 4 kg

DRUGS (2)
  1. HUMALOG [Suspect]
     Dates: start: 20020101, end: 20030501
  2. LANTUS [Concomitant]

REACTIONS (5)
  - DRUG EXPOSURE DURING PREGNANCY [None]
  - HYPOGLYCAEMIA NEONATAL [None]
  - JAUNDICE NEONATAL [None]
  - PREMATURE BABY [None]
  - RESPIRATORY DISORDER NEONATAL [None]
